FAERS Safety Report 5307612-1 (Version None)
Quarter: 2007Q2

REPORT INFORMATION
  Report Type: 
  Country: None (occurrence: None)
  Receive Date: 20070425
  Receipt Date: 20070413
  Transmission Date: 20071010
  Serious: Yes (Other)
  Sender: FDA-Public Use
  Company Number: FR-PFIZER INC-2007030118

PATIENT
  Sex: Male

DRUGS (1)
  1. CHAMPIX [Suspect]
     Indication: EX-SMOKER

REACTIONS (4)
  - EYE BURNS [None]
  - FUNGAL INFECTION [None]
  - LACRIMATION INCREASED [None]
  - OEDEMA [None]
